FAERS Safety Report 25449932 (Version 1)
Quarter: 2025Q2

REPORT INFORMATION
  Report Type: Report from Study
  Country: IT (occurrence: IT)
  Receive Date: 20250618
  Receipt Date: 20250618
  Transmission Date: 20250717
  Serious: Yes (Other)
  Sender: BAUSCH AND LOMB
  Company Number: IT-BAUSCH-BL-2025-007398

PATIENT
  Age: 53 Year
  Sex: Female

DRUGS (7)
  1. DEXAMETHASONE [Interacting]
     Active Substance: DEXAMETHASONE
     Indication: Product used for unknown indication
     Route: 065
  2. LEVOFLOXACIN [Interacting]
     Active Substance: LEVOFLOXACIN
     Indication: Product used for unknown indication
     Route: 065
  3. LACTULOSE [Interacting]
     Active Substance: LACTULOSE
     Indication: Product used for unknown indication
     Route: 065
  4. NAPROXEN [Interacting]
     Active Substance: NAPROXEN
     Indication: Product used for unknown indication
     Route: 065
  5. FENTANYL [Concomitant]
     Active Substance: FENTANYL
     Indication: Product used for unknown indication
  6. OMEPRAZOLE [Concomitant]
     Active Substance: OMEPRAZOLE
     Indication: Product used for unknown indication
  7. NIVOLUMAB [Concomitant]
     Active Substance: NIVOLUMAB
     Indication: Non-small cell lung cancer

REACTIONS (5)
  - Gastrointestinal disorder [Unknown]
  - Drug interaction [Unknown]
  - Labelled drug-drug interaction issue [Unknown]
  - Hypokalaemia [Unknown]
  - Tendon rupture [Unknown]
